FAERS Safety Report 21929489 (Version 2)
Quarter: 2023Q1

REPORT INFORMATION
  Report Type: Spontaneous
  Country: US (occurrence: US)
  Receive Date: 20230131
  Receipt Date: 20230209
  Transmission Date: 20230417
  Serious: Yes (Life-Threatening, Hospitalization, Other)
  Sender: FDA-Public Use
  Company Number: US-CIPLA (EU) LIMITED-2023US00350

PATIENT

DRUGS (2)
  1. ALBUTEROL [Suspect]
     Active Substance: ALBUTEROL
     Indication: Status asthmaticus
     Dosage: 20MG/HOUR OVER SEVERAL HOURS
     Route: 065
  2. MAGNESIUM SULFATE [Concomitant]
     Active Substance: MAGNESIUM SULFATE
     Indication: Status asthmaticus
     Dosage: UNK
     Route: 065

REACTIONS (7)
  - Respiratory failure [Unknown]
  - Shock [Unknown]
  - Acute pulmonary oedema [Unknown]
  - Left ventricular end-diastolic pressure decreased [Unknown]
  - Cor triatriatum [Unknown]
  - Condition aggravated [Unknown]
  - Tachycardia [Unknown]
